FAERS Safety Report 14376916 (Version 2)
Quarter: 2018Q2

REPORT INFORMATION
  Report Type: Spontaneous
  Country: JP (occurrence: JP)
  Receive Date: 20180111
  Receipt Date: 20180406
  Transmission Date: 20180711
  Serious: Yes (Other)
  Sender: FDA-Public Use
  Company Number: JP-EISAI MEDICAL RESEARCH-EC-2018-034959

PATIENT
  Sex: Male

DRUGS (3)
  1. LENVIMA [Suspect]
     Active Substance: LENVATINIB
     Route: 048
     Dates: start: 20180105, end: 20180108
  2. LENVIMA [Suspect]
     Active Substance: LENVATINIB
     Indication: HEPATOCELLULAR CARCINOMA
     Route: 048
     Dates: start: 20171222, end: 20171222
  3. LENVIMA [Suspect]
     Active Substance: LENVATINIB
     Dosage: UNKNOWN
     Route: 048
     Dates: start: 201801, end: 20180124

REACTIONS (4)
  - Product use in unapproved indication [Recovered/Resolved]
  - Pyrexia [Not Recovered/Not Resolved]
  - Cholangitis [Recovered/Resolved]
  - Platelet count decreased [Recovered/Resolved]

NARRATIVE: CASE EVENT DATE: 20171222
